FAERS Safety Report 8218380-8 (Version None)
Quarter: 2012Q1

REPORT INFORMATION
  Report Type: 
  Country: None (occurrence: None)
  Receive Date: 20120319
  Receipt Date: 20120315
  Transmission Date: 20120608
  Serious: Yes (Hospitalization, Other)
  Sender: FDA-Public Use
  Company Number: BE-GLAXOSMITHKLINE-B0749190A

PATIENT
  Sex: Female
  Weight: 78.5 kg

DRUGS (1)
  1. CHLORAMBUCIL [Suspect]
     Indication: CHRONIC LYMPHOCYTIC LEUKAEMIA
     Dosage: 44MG PER DAY
     Dates: start: 20101102

REACTIONS (3)
  - GASTROOESOPHAGEAL REFLUX DISEASE [None]
  - PYREXIA [None]
  - URINARY TRACT INFECTION [None]
